FAERS Safety Report 8129160-6 (Version None)
Quarter: 2012Q1

REPORT INFORMATION
  Report Type: 
  Country: None (occurrence: None)
  Receive Date: 20120210
  Receipt Date: 20111026
  Transmission Date: 20120608
  Serious: No
  Sender: FDA-Public Use
  Company Number: US-BRISTOL-MYERS SQUIBB COMPANY-16196990

PATIENT
  Age: 49 Year
  Sex: Female

DRUGS (17)
  1. ACETAMINOPHEN [Concomitant]
     Dosage: TYLENOL #3.
  2. FOLIC ACID [Concomitant]
  3. XYZAL [Concomitant]
  4. PROPRANOLOL [Concomitant]
  5. KETOCONAZOLE [Concomitant]
  6. LIDODERM [Concomitant]
  7. PREMARIN [Concomitant]
     Dosage: VAGINAL CREAM
  8. VALACYCLOVIR [Concomitant]
  9. VITAMIN B-12 [Concomitant]
  10. BUPROPION HCL [Concomitant]
  11. ORENCIA [Suspect]
     Indication: RHEUMATOID ARTHRITIS
     Dosage: NO OF DOSAGE: 2.
     Route: 042
  12. SULFASALAZINE [Concomitant]
  13. TRAMADOL HCL [Concomitant]
  14. METHOTREXATE [Concomitant]
  15. STEROIDS [Concomitant]
     Dosage: NOSE SPRAY.
  16. PROTONIX [Concomitant]
  17. LEVOTHYROXINE SODIUM [Concomitant]

REACTIONS (2)
  - SWELLING [None]
  - ARTHRALGIA [None]
